FAERS Safety Report 5146368-2 (Version None)
Quarter: 2006Q4

REPORT INFORMATION
  Report Type: 
  Country: None (occurrence: None)
  Receive Date: 20061102
  Receipt Date: 20061027
  Transmission Date: 20070319
  Serious: Yes (Death)
  Sender: FDA-Public Use
  Company Number: 2006SP005157

PATIENT
  Age: 78 Year
  Sex: Male
  Weight: 68 kg

DRUGS (2)
  1. TEMODAR [Suspect]
     Indication: METASTASIS
     Dosage: 75 MG/M2;QD;PO
     Route: 048
     Dates: start: 20061016, end: 20061020
  2. RADIATION THERAPY [Suspect]
     Indication: METASTASIS
     Dosage: QD
     Dates: start: 20061016, end: 20061024

REACTIONS (1)
  - LUNG ADENOCARCINOMA [None]
